FAERS Safety Report 5354815-6 (Version None)
Quarter: 2007Q2

REPORT INFORMATION
  Report Type: 
  Country: None (occurrence: None)
  Receive Date: 20070612
  Receipt Date: 20070531
  Transmission Date: 20071010
  Serious: Yes (Hospitalization, Other)
  Sender: FDA-Public Use
  Company Number: US-PFIZER INC-2005172409

PATIENT
  Sex: Female
  Weight: 105 kg

DRUGS (16)
  1. ZYVOX [Suspect]
     Indication: STAPHYLOCOCCAL SEPSIS
     Route: 042
  2. ZYVOX [Interacting]
     Route: 042
  3. RIFAMPIN [Interacting]
     Indication: ILL-DEFINED DISORDER
  4. XIGRIS [Concomitant]
     Route: 042
  5. NOREPINEPHRINE [Concomitant]
     Route: 042
  6. VASOPRESSIN INJECTION [Concomitant]
     Route: 042
  7. PIPERACILLIN AND TAZOBACTAM [Concomitant]
  8. VANCOMYCIN HCL [Concomitant]
  9. CLINDAMYCIN HCL [Concomitant]
  10. CASPOFUNGIN [Concomitant]
     Indication: SYSTEMIC CANDIDA
  11. FLUCONAZOLE [Concomitant]
     Indication: SYSTEMIC CANDIDA
  12. MEROPENEM [Concomitant]
     Indication: ESCHERICHIA BACTERAEMIA
  13. LEVOFLOXACIN [Concomitant]
     Indication: ESCHERICHIA BACTERAEMIA
  14. OXYCODONE HCL [Concomitant]
     Indication: PAIN
  15. SERTRALINE [Concomitant]
     Indication: DEPRESSION
  16. HYDROXYCHLOROQUINE SULFATE [Concomitant]
     Indication: SYSTEMIC LUPUS ERYTHEMATOSUS

REACTIONS (5)
  - DRUG INEFFECTIVE [None]
  - DRUG INTERACTION [None]
  - DRUG LEVEL DECREASED [None]
  - LUPUS-LIKE SYNDROME [None]
  - PYREXIA [None]
